FAERS Safety Report 20584510 (Version 1)
Quarter: 2022Q1

REPORT INFORMATION
  Report Type: Spontaneous
  Country: US (occurrence: US)
  Receive Date: 20220311
  Receipt Date: 20220311
  Transmission Date: 20220423
  Serious: No
  Sender: FDA-Public Use
  Company Number: US-ORGANON-O2203USA001046

PATIENT
  Sex: Female
  Weight: 79.819 kg

DRUGS (2)
  1. NEXPLANON [Suspect]
     Active Substance: ETONOGESTREL
     Dosage: ONE EVERY THREE YEARS, LEFT ARM
     Route: 059
     Dates: start: 201504
  2. NEXPLANON [Suspect]
     Active Substance: ETONOGESTREL
     Dosage: ONE EVERY THREE YEARS, RIGHT ARM
     Route: 059
     Dates: start: 2018

REACTIONS (10)
  - Chest pain [Unknown]
  - Pain in extremity [Unknown]
  - Pain in extremity [Unknown]
  - Complication associated with device [Not Recovered/Not Resolved]
  - Complication of device removal [Not Recovered/Not Resolved]
  - Device use issue [Not Recovered/Not Resolved]
  - Device placement issue [Not Recovered/Not Resolved]
  - Incorrect product administration duration [Unknown]
  - Overdose [Unknown]
  - Incorrect product administration duration [Unknown]

NARRATIVE: CASE EVENT DATE: 20180101
